FAERS Safety Report 8542617-9 (Version None)
Quarter: 2012Q3

REPORT INFORMATION
  Report Type: 
  Country: None (occurrence: None)
  Receive Date: 20120726
  Receipt Date: 20120712
  Transmission Date: 20120928
  Serious: Yes (Hospitalization)
  Sender: FDA-Public Use
  Company Number: GB-009507513-1207GBR004584

PATIENT

DRUGS (10)
  1. METOCLOPRAMIDE [Concomitant]
  2. AMLODIPINE [Concomitant]
  3. CYCLIZINE [Concomitant]
  4. METOPROLOL SUCCINATE [Concomitant]
  5. DEXAMETHASONE [Suspect]
     Dosage: 12 MG, QD
     Route: 048
     Dates: start: 20120625
  6. ACETAMINOPHEN [Concomitant]
  7. ALLOPURINOL [Concomitant]
  8. DEXAMETHASONE [Suspect]
     Indication: METASTASES TO CENTRAL NERVOUS SYSTEM
     Dosage: 16 MG, QD
     Route: 048
     Dates: start: 20120620, end: 20120624
  9. PEPTAC (CALCIUM CARBONATE (+) SODIUM ALGINATE (+) SODIUM BICARBONATE) [Concomitant]
  10. OMEPRAZOLE [Concomitant]

REACTIONS (3)
  - SUBSTANCE-INDUCED PSYCHOTIC DISORDER [None]
  - HALLUCINATION, VISUAL [None]
  - DELUSION [None]
